FAERS Safety Report 12926618 (Version 2)
Quarter: 2016Q4

REPORT INFORMATION
  Report Type: Spontaneous
  Country: IN (occurrence: IN)
  Receive Date: 20161109
  Receipt Date: 20161207
  Transmission Date: 20170207
  Serious: Yes (Hospitalization, Other)
  Sender: FDA-Public Use
  Company Number: IN-SUPERNUS PHARMACEUTICALS, INC.-2016SUP00183

PATIENT
  Age: 20 Year
  Sex: Female

DRUGS (2)
  1. LEVETIRACETAM. [Concomitant]
     Active Substance: LEVETIRACETAM
     Indication: MIGRAINE PROPHYLAXIS
     Dosage: 250 MG, 2X/DAY
     Route: 065
  2. TOPIRAMATE. [Suspect]
     Active Substance: TOPIRAMATE
     Indication: MIGRAINE PROPHYLAXIS
     Dosage: 25 MG, 2X/DAY
     Route: 048
     Dates: start: 20150505, end: 20150514

REACTIONS (5)
  - Choroidal effusion [Recovered/Resolved]
  - Blindness [Recovered/Resolved]
  - Iris adhesions [Recovering/Resolving]
  - Angle closure glaucoma [Recovered/Resolved]
  - Myopia [Recovered/Resolved]

NARRATIVE: CASE EVENT DATE: 201505
